FAERS Safety Report 17359206 (Version 2)
Quarter: 2020Q1

REPORT INFORMATION
  Report Type: Spontaneous
  Country: CA (occurrence: CA)
  Receive Date: 20200203
  Receipt Date: 20200204
  Transmission Date: 20200409
  Serious: No
  Sender: FDA-Public Use
  Company Number: CA-TERSERA THERAPEUTICS LLC-2020TRS000188

PATIENT

DRUGS (1)
  1. ZOLADEX [Suspect]
     Active Substance: GOSERELIN ACETATE
     Indication: PRODUCT USED FOR UNKNOWN INDICATION
     Dosage: UNK, Q3MONTHS
     Route: 058
     Dates: start: 201911

REACTIONS (1)
  - Urticaria [Recovering/Resolving]

NARRATIVE: CASE EVENT DATE: 202001
